FAERS Safety Report 4351343-1 (Version None)
Quarter: 2004Q2

REPORT INFORMATION
  Report Type: 
  Country: None (occurrence: None)
  Receive Date: 20040428
  Receipt Date: 20040414
  Transmission Date: 20050107
  Serious: Yes (Hospitalization)
  Sender: FDA-Public Use
  Company Number: USA040464863

PATIENT
  Age: 55 Year
  Sex: Female
  Weight: 114 kg

DRUGS (1)
  1. HUMALOG [Suspect]
     Indication: DIABETES MELLITUS

REACTIONS (11)
  - CARDIAC FAILURE CONGESTIVE [None]
  - CELLULITIS [None]
  - DRUG INEFFECTIVE [None]
  - INFECTED SKIN ULCER [None]
  - MEMORY IMPAIRMENT [None]
  - PHARMACEUTICAL PRODUCT COMPLAINT [None]
  - PRURITUS [None]
  - RASH PAPULAR [None]
  - SCRATCH [None]
  - SKIN ULCER [None]
  - SKIN ULCER HAEMORRHAGE [None]
